FAERS Safety Report 24431189 (Version 1)
Quarter: 2024Q4

REPORT INFORMATION
  Report Type: Spontaneous
  Country: US (occurrence: US)
  Receive Date: 20241014
  Receipt Date: 20241014
  Transmission Date: 20250115
  Serious: Yes (Death, Other)
  Sender: AUROBINDO
  Company Number: US-AUROBINDO-AUR-APL-2024-048788

PATIENT
  Age: 55 Year
  Sex: Male

DRUGS (14)
  1. CLINDAMYCIN [Suspect]
     Active Substance: CLINDAMYCIN
     Indication: Vibrio vulnificus infection
     Dosage: UNK
     Route: 042
  2. CLINDAMYCIN [Suspect]
     Active Substance: CLINDAMYCIN
     Indication: Septic shock
  3. DOXYCYCLINE [Suspect]
     Active Substance: DOXYCYCLINE
     Indication: Septic shock
     Dosage: UNK
     Route: 042
  4. DOXYCYCLINE [Suspect]
     Active Substance: DOXYCYCLINE
     Indication: Vibrio vulnificus infection
  5. MEROPENEM [Suspect]
     Active Substance: MEROPENEM
     Indication: Septic shock
     Dosage: UNK
     Route: 042
  6. MEROPENEM [Suspect]
     Active Substance: MEROPENEM
     Indication: Vibrio vulnificus infection
  7. PHENYLEPHRINE [Suspect]
     Active Substance: PHENYLEPHRINE HYDROCHLORIDE
     Indication: Septic shock
     Dosage: UNK
     Route: 065
  8. PHENYLEPHRINE [Suspect]
     Active Substance: PHENYLEPHRINE HYDROCHLORIDE
     Indication: Vibrio vulnificus infection
  9. PIPERACILLIN AND TAZOBACTAM [Suspect]
     Active Substance: PIPERACILLIN SODIUM\TAZOBACTAM SODIUM
     Indication: Vibrio vulnificus infection
     Dosage: UNK
     Route: 042
  10. PIPERACILLIN AND TAZOBACTAM [Suspect]
     Active Substance: PIPERACILLIN SODIUM\TAZOBACTAM SODIUM
     Indication: Septic shock
  11. VASOPRESSIN [Suspect]
     Active Substance: VASOPRESSIN
     Indication: Vibrio vulnificus infection
     Dosage: UNK
     Route: 065
  12. VASOPRESSIN [Suspect]
     Active Substance: VASOPRESSIN
     Indication: Septic shock
  13. NOREPINEPHRINE [Suspect]
     Active Substance: NOREPINEPHRINE\NOREPINEPHRINE BITARTRATE
     Indication: Septic shock
     Dosage: UNK
     Route: 065
  14. NOREPINEPHRINE [Suspect]
     Active Substance: NOREPINEPHRINE\NOREPINEPHRINE BITARTRATE
     Indication: Vibrio vulnificus infection

REACTIONS (1)
  - Drug ineffective [Fatal]
